FAERS Safety Report 5134720-0 (Version None)
Quarter: 2006Q4

REPORT INFORMATION
  Report Type: 
  Country: None (occurrence: None)
  Receive Date: 20061019
  Receipt Date: 20061003
  Transmission Date: 20070319
  Serious: Yes (Other)
  Sender: FDA-Public Use
  Company Number: 36645

PATIENT
  Sex: Male

DRUGS (2)
  1. VIGAMOX [Suspect]
  2. ECONOPRED [Suspect]

REACTIONS (2)
  - OPTIC ISCHAEMIC NEUROPATHY [None]
  - VISUAL ACUITY REDUCED [None]
